FAERS Safety Report 13280422 (Version 1)
Quarter: 2017Q1

REPORT INFORMATION
  Report Type: Spontaneous
  Country: CA (occurrence: CA)
  Receive Date: 20170301
  Receipt Date: 20170301
  Transmission Date: 20170428
  Serious: Yes (Other)
  Sender: FDA-Public Use
  Company Number: CA-BAXTER-2017BAX008906

PATIENT
  Age: 62 Year
  Sex: Male

DRUGS (7)
  1. PROCYTOX (CYCLOPHOSPHAMIDE) 2000MG/VIAL [Suspect]
     Active Substance: CYCLOPHOSPHAMIDE
     Indication: PLASMA CELL MYELOMA RECURRENT
     Dosage: DOSAGE FORM NOT SPECIFIED
     Route: 065
  2. VELCADE [Suspect]
     Active Substance: BORTEZOMIB
     Dosage: SINGLE USE VIAL
     Route: 065
  3. ACYCLOVIR. [Concomitant]
     Active Substance: ACYCLOVIR
     Indication: PRODUCT USED FOR UNKNOWN INDICATION
     Route: 065
  4. LEVOFLOXACIN. [Concomitant]
     Active Substance: LEVOFLOXACIN
     Indication: PRODUCT USED FOR UNKNOWN INDICATION
     Route: 065
  5. RANITIDINE. [Concomitant]
     Active Substance: RANITIDINE
     Indication: PRODUCT USED FOR UNKNOWN INDICATION
     Route: 065
  6. VELCADE [Suspect]
     Active Substance: BORTEZOMIB
     Indication: PLASMA CELL MYELOMA RECURRENT
     Dosage: POWDER FOR SOLUTION INTRAVENOUS, SINGLE USE VIAL
     Route: 065
  7. PREDNISONE. [Suspect]
     Active Substance: PREDNISONE
     Indication: PLASMA CELL MYELOMA RECURRENT
     Route: 065

REACTIONS (3)
  - Cataract [Not Recovered/Not Resolved]
  - Neuropathy peripheral [Not Recovered/Not Resolved]
  - Asthenia [Not Recovered/Not Resolved]
